FAERS Safety Report 25884305 (Version 1)
Quarter: 2025Q4

REPORT INFORMATION
  Report Type: Spontaneous
  Country: US (occurrence: US)
  Receive Date: 20251006
  Receipt Date: 20251006
  Transmission Date: 20260118
  Serious: Yes (Other)
  Sender: ABBVIE
  Company Number: US-ABBVIE-6489519

PATIENT
  Sex: Female

DRUGS (1)
  1. LINACLOTIDE [Suspect]
     Active Substance: LINACLOTIDE
     Indication: Product used for unknown indication
     Route: 048

REACTIONS (6)
  - Surgery [Unknown]
  - Nerve injury [Unknown]
  - Diarrhoea [Unknown]
  - Illness [Unknown]
  - Drug ineffective [Unknown]
  - Nightmare [Unknown]

NARRATIVE: CASE EVENT DATE: 20250101
